FAERS Safety Report 22379696 (Version 2)
Quarter: 2023Q2

REPORT INFORMATION
  Report Type: Report from Study
  Country: CA (occurrence: CA)
  Receive Date: 20230529
  Receipt Date: 20230530
  Transmission Date: 20230721
  Serious: Yes (Other)
  Sender: FDA-Public Use
  Company Number: CA-HLS-202301341

PATIENT
  Age: 43 Year
  Sex: Male

DRUGS (2)
  1. CLOZARIL [Suspect]
     Active Substance: CLOZAPINE
     Indication: Product used for unknown indication
     Route: 048
     Dates: start: 20070601, end: 20230523
  2. CLOZARIL [Suspect]
     Active Substance: CLOZAPINE
     Indication: Product used for unknown indication
     Dosage: RESTARTED 25-MAY-2023
     Route: 048

REACTIONS (2)
  - Neutropenia [Not Recovered/Not Resolved]
  - White blood cell count decreased [Unknown]

NARRATIVE: CASE EVENT DATE: 20230523
